FAERS Safety Report 7053381-7 (Version None)
Quarter: 2010Q4

REPORT INFORMATION
  Report Type: 
  Country: None (occurrence: None)
  Receive Date: 20101014
  Receipt Date: 20101006
  Transmission Date: 20110411
  Serious: Yes (Other)
  Sender: FDA-Public Use
  Company Number: 2010SP053793

PATIENT
  Age: 31 Year
  Sex: Female
  Weight: 68 kg

DRUGS (4)
  1. NUVARING [Suspect]
     Indication: CONTRACEPTION
     Dosage: ; QM; VAG
     Route: 067
     Dates: start: 20080101
  2. LAMOTRIGINE [Concomitant]
  3. LEVOTHYROXINE [Concomitant]
  4. OMEPRAZOL /00661201/ [Concomitant]

REACTIONS (3)
  - AMENORRHOEA [None]
  - BIPOLAR I DISORDER [None]
  - HYPOTHYROIDISM [None]
